FAERS Safety Report 8735319 (Version 3)
Quarter: 2013Q1

REPORT INFORMATION
  Report Type: Report from Study
  Country: JP (occurrence: JP)
  Receive Date: 20120822
  Receipt Date: 20130313
  Transmission Date: 20140127
  Serious: Yes (Hospitalization, Other)
  Sender: FDA-Public Use
  Company Number: JP-009507513-1208JPN002533

PATIENT
  Age: 63 Year
  Sex: Female
  Weight: 68 kg

DRUGS (12)
  1. PEGINTRON [Suspect]
     Indication: HEPATITIS C
     Dosage: 1.2 MICROGRAM PER KILOGRAM, QW
     Route: 058
     Dates: start: 20120515, end: 20120529
  2. PEGINTRON [Suspect]
     Dosage: 50 MICROGRAM PER KILOGRAM, QW
     Route: 058
     Dates: start: 20120606, end: 20120627
  3. REBETOL [Suspect]
     Indication: HEPATITIS C
     Dosage: 600 MG, QD
     Route: 048
     Dates: start: 20120515, end: 20120612
  4. REBETOL [Suspect]
     Dosage: 200 MG, QD
     Route: 048
     Dates: start: 20120613, end: 20120626
  5. REBETOL [Suspect]
     Dosage: 400 MG, QD
     Route: 048
     Dates: start: 20120627, end: 20120702
  6. TELAVIC [Suspect]
     Indication: HEPATITIS C
     Dosage: 1500 MILLIGRAMS, QD
     Route: 048
     Dates: start: 20120515, end: 20120702
  7. URSO [Concomitant]
     Indication: HEPATITIS C
     Dosage: 450 MG, ONCE
     Route: 048
  8. URSO [Concomitant]
     Dosage: 900 MG, UNK
     Dates: end: 20120702
  9. BIO-THREE [Concomitant]
     Route: 048
     Dates: start: 20120522
  10. GAMOFA [Concomitant]
     Indication: PROPHYLAXIS
     Dosage: 20 MG, QD
     Route: 042
     Dates: start: 20120703, end: 20120709
  11. PANTHENOL [Concomitant]
     Indication: PROPHYLAXIS
     Dosage: 500 MG, QD
     Route: 042
     Dates: start: 20120703, end: 20120704
  12. PROCTOSEDYL (DIBUCAINE HYDROCHLORIDE (+) FRAMYCETIN SULFATE (+) HYDROC [Concomitant]
     Route: 061

REACTIONS (5)
  - Haematuria [Not Recovered/Not Resolved]
  - Urinary bladder haemorrhage [Recovered/Resolved]
  - Bladder tamponade [Recovered/Resolved]
  - Depressive symptom [Not Recovered/Not Resolved]
  - Diarrhoea [Recovered/Resolved]
